FAERS Safety Report 20632625 (Version 1)
Quarter: 2022Q1

REPORT INFORMATION
  Report Type: Spontaneous
  Country: MX (occurrence: MX)
  Receive Date: 20220324
  Receipt Date: 20220324
  Transmission Date: 20220423
  Serious: Yes (Other)
  Sender: FDA-Public Use
  Company Number: MX-JAZZ-2022-MX-009005

PATIENT
  Age: 3 Year
  Sex: Male

DRUGS (1)
  1. ASPARAGINASE [Suspect]
     Active Substance: ASPARAGINASE
     Indication: Acute lymphocytic leukaemia
     Dosage: 500 INTERNATIONAL UNIT PER MILLILITRE
     Route: 030

REACTIONS (1)
  - Anaphylactic reaction [Unknown]
